FAERS Safety Report 7138582-1 (Version None)
Quarter: 2010Q4

REPORT INFORMATION
  Report Type: 
  Country: None (occurrence: None)
  Receive Date: 20101130
  Receipt Date: 20101130
  Transmission Date: 20110411
  Serious: Yes (Life-Threatening, Hospitalization, Other)
  Sender: FDA-Public Use
  Company Number: None

PATIENT
  Sex: Female
  Weight: 100.6985 kg

DRUGS (2)
  1. ISOSORBIDE 30MG ETHEX ISOSORBIDE [Suspect]
     Indication: HYPERTENSION
     Dosage: 30MG 1 TAB DAILY ORAL
     Route: 048
     Dates: start: 20060101, end: 20080101
  2. ISOSORBIDE 30MG ETHEX ISOSORBIDE [Suspect]
     Indication: HYPERTENSION
     Dosage: 30MG 1 TAB DAILY ORAL
     Route: 048
     Dates: start: 20100101

REACTIONS (9)
  - BLOOD POTASSIUM DECREASED [None]
  - DEHYDRATION [None]
  - DRUG DISPENSING ERROR [None]
  - GAIT DISTURBANCE [None]
  - HEADACHE [None]
  - INCORRECT DOSE ADMINISTERED [None]
  - NAUSEA [None]
  - VERTIGO [None]
  - VOMITING [None]
